FAERS Safety Report 8273810-0 (Version None)
Quarter: 2012Q2

REPORT INFORMATION
  Report Type: 
  Country: None (occurrence: None)
  Receive Date: 20120411
  Receipt Date: 20120410
  Transmission Date: 20120825
  Serious: Yes (Death, Other)
  Sender: FDA-Public Use
  Company Number: PHHY2012CA017858

PATIENT
  Sex: Female

DRUGS (8)
  1. TASIGNA [Suspect]
     Dosage: 400 MG, BID
     Route: 048
     Dates: start: 20091001, end: 20120101
  2. INSULIN [Concomitant]
     Dosage: 10 IU, QHS
  3. TASIGNA [Suspect]
     Indication: CHRONIC MYELOID LEUKAEMIA
     Route: 048
     Dates: start: 20070320
  4. LEVOTHYROXINE SODIUM [Concomitant]
     Dosage: 150 MG,
     Route: 048
  5. KETOROLAC TROMETHAMINE [Concomitant]
     Dosage: 10 MG, QID
  6. TEMAZEPAM [Concomitant]
     Dosage: 30 MG, QHS
  7. METFORMIN HCL [Concomitant]
     Dosage: 1000 MG, BID
  8. INSULIN LISPRO [Concomitant]
     Dosage: 5 IU, TID

REACTIONS (2)
  - SYSTEMIC CANDIDA [None]
  - CHRONIC MYELOID LEUKAEMIA TRANSFORMATION [None]
